FAERS Safety Report 14224615 (Version 1)
Quarter: 2017Q4

REPORT INFORMATION
  Report Type: Report from Study
  Country: US (occurrence: US)
  Receive Date: 20171127
  Receipt Date: 20171127
  Transmission Date: 20180321
  Serious: Yes (Other)
  Sender: FDA-Public Use
  Company Number: US-ROCHE-1920730

PATIENT

DRUGS (4)
  1. ALTEPLASE. [Suspect]
     Active Substance: ALTEPLASE
     Dosage: 0.5 MG/KG/HOUR FOR 2 HOURS
     Route: 050
  2. HEPARIN [Suspect]
     Active Substance: HEPARIN SODIUM
     Indication: ARTERIAL SPASM
     Dosage: 17 U/KG/HOUR FOR 4 HOURS
     Route: 050
  3. ALTEPLASE. [Suspect]
     Active Substance: ALTEPLASE
     Indication: ARTERIAL SPASM
     Route: 050
  4. HEPARIN [Suspect]
     Active Substance: HEPARIN SODIUM
     Route: 050

REACTIONS (3)
  - Catheter site haematoma [Unknown]
  - Catheter site haemorrhage [Unknown]
  - Rectal haemorrhage [Unknown]
